FAERS Safety Report 20572237 (Version 1)
Quarter: 2022Q1

REPORT INFORMATION
  Report Type: Spontaneous
  Country: US (occurrence: None)
  Receive Date: 20220308
  Receipt Date: 20220308
  Transmission Date: 20220424
  Serious: Yes (Other)
  Sender: FDA-Public Use
  Company Number: None

PATIENT
  Age: 70 Year
  Sex: Male
  Weight: 90 kg

DRUGS (5)
  1. VICTOZA [Suspect]
     Active Substance: LIRAGLUTIDE
     Indication: Diabetes mellitus
     Dosage: OTHER QUANTITY : 1 INJECTION(S);?OTHER ROUTE : INJECTION INTO STOMACHE;?
     Route: 058
     Dates: start: 20220225, end: 20220303
  2. GLIPIZIDE [Concomitant]
  3. ATENOLOL [Concomitant]
     Active Substance: ATENOLOL
  4. AMLODIPINE [Concomitant]
     Active Substance: AMLODIPINE BESYLATE
  5. LIBRE 2 [Concomitant]

REACTIONS (2)
  - Flank pain [None]
  - Pain [None]

NARRATIVE: CASE EVENT DATE: 20220302
